FAERS Safety Report 25938178 (Version 1)
Quarter: 2025Q4

REPORT INFORMATION
  Report Type: Spontaneous
  Country: EU (occurrence: EU)
  Receive Date: 20251018
  Receipt Date: 20251018
  Transmission Date: 20260118
  Serious: Yes (Hospitalization)
  Sender: ACCORD
  Company Number: None

PATIENT
  Age: 67 Year
  Sex: Male
  Weight: 62 kg

DRUGS (5)
  1. METHOTREXATE [Interacting]
     Active Substance: METHOTREXATE
     Indication: Central nervous system lymphoma
     Dates: start: 20250702, end: 20250702
  2. RITUXIMAB [Interacting]
     Active Substance: RITUXIMAB
     Indication: Central nervous system lymphoma
     Dates: start: 20250818, end: 20250818
  3. VINCRISTINE [Interacting]
     Active Substance: VINCRISTINE
     Indication: Central nervous system lymphoma
     Dosage: STRENGTH: 2 MG/2 ML, SOLUTION FOR INJECTION
     Dates: start: 20250819, end: 20250819
  4. PROCARBAZINE HYDROCHLORIDE [Interacting]
     Active Substance: PROCARBAZINE HYDROCHLORIDE
     Indication: Central nervous system lymphoma
     Dosage: STRENGTH: 50 MG, CAPSULE
     Dates: start: 20250819, end: 20250825
  5. METHOTREXATE (METHOTREXATE SODIUM) [Suspect]
     Active Substance: METHOTREXATE SODIUM
     Indication: Product used for unknown indication
     Dosage: DRUG NOT ADMINISTERED

REACTIONS (5)
  - Product supply issue [Recovered/Resolved]
  - Acute kidney injury [Recovering/Resolving]
  - Mucosal inflammation [Recovering/Resolving]
  - Thrombocytopenia [Recovered/Resolved]
  - Anaemia [Recovered/Resolved]

NARRATIVE: CASE EVENT DATE: 20250819
